FAERS Safety Report 9328251 (Version 1)
Quarter: 2013Q2

REPORT INFORMATION
  Report Type: Spontaneous
  Country: US (occurrence: US)
  Receive Date: 20130604
  Receipt Date: 20130604
  Transmission Date: 20140414
  Serious: No
  Sender: FDA-Public Use
  Company Number: US-ASTRAZENECA-2013SE37706

PATIENT
  Age: 70 Year
  Sex: Female
  Weight: 86.2 kg

DRUGS (6)
  1. SYMBICORT PMDI [Suspect]
     Indication: ASTHMA
     Dosage: UNKNOWN DOSE, DAILY
     Route: 055
  2. LEVOXYL [Suspect]
     Indication: THYROID DISORDER
     Route: 065
     Dates: start: 200603, end: 20130501
  3. LEVOXYL [Suspect]
     Indication: WEIGHT DECREASED
     Route: 065
     Dates: start: 200603, end: 20130501
  4. LEVOXYL [Suspect]
     Indication: THYROID DISORDER
     Dosage: GENERIC, 100 MCG, DAILY
     Route: 065
     Dates: start: 20130501
  5. LEVOXYL [Suspect]
     Indication: WEIGHT DECREASED
     Dosage: GENERIC, 100 MCG, DAILY
     Route: 065
     Dates: start: 20130501
  6. SIMVASTATIN [Concomitant]
     Indication: BLOOD CHOLESTEROL INCREASED

REACTIONS (4)
  - Asthma [Unknown]
  - Blood cholesterol increased [Unknown]
  - Hypertension [Unknown]
  - Hypotension [Unknown]
